FAERS Safety Report 19213082 (Version 1)
Quarter: 2021Q2

REPORT INFORMATION
  Report Type: Report from Study
  Country: DE (occurrence: DE)
  Receive Date: 20210504
  Receipt Date: 20210504
  Transmission Date: 20210717
  Serious: Yes (Other)
  Sender: FDA-Public Use
  Company Number: DE-AMGEN-DEUNI2021065083

PATIENT
  Age: 51 Year
  Sex: Male
  Weight: 61 kg

DRUGS (24)
  1. FOLINIC ACID [Suspect]
     Active Substance: LEUCOVORIN
     Dosage: 696 MILLIGRAM
     Route: 065
     Dates: start: 20201111
  2. DOXYCYCLIN?RATIOPHARM [Concomitant]
     Indication: RASH
     Dosage: 100 MILLIGRAM, BID
     Route: 048
     Dates: start: 20201014
  3. FLUOROURACIL. [Suspect]
     Active Substance: FLUOROURACIL
     Dosage: 700 MILLIGRAM
     Route: 040
     Dates: start: 20201125
  4. FLUOROURACIL. [Suspect]
     Active Substance: FLUOROURACIL
     Dosage: 4176 MILLIGRAM
     Route: 042
     Dates: start: 20201014
  5. FLUOROURACIL. [Suspect]
     Active Substance: FLUOROURACIL
     Dosage: 4180 MILLIGRAM
     Route: 042
     Dates: start: 20201125
  6. FLUOROURACIL. [Suspect]
     Active Substance: FLUOROURACIL
     Dosage: 4176 MILLIGRAM
     Route: 042
     Dates: start: 20201223
  7. PANITUMUMAB [Suspect]
     Active Substance: PANITUMUMAB
     Dosage: 370 MILLIGRAM
     Route: 042
     Dates: start: 20201125
  8. PANITUMUMAB [Suspect]
     Active Substance: PANITUMUMAB
     Indication: COLORECTAL CANCER METASTATIC
     Dosage: 366 MILLIGRAM
     Route: 042
     Dates: start: 20201014
  9. FOLINIC ACID [Suspect]
     Active Substance: LEUCOVORIN
     Dosage: 700 MILLIGRAM
     Route: 065
     Dates: start: 20201125
  10. FOLINIC ACID [Suspect]
     Active Substance: LEUCOVORIN
     Dosage: 700 MILLIGRAM
     Route: 065
     Dates: start: 20210324
  11. FLUOROURACIL. [Suspect]
     Active Substance: FLUOROURACIL
     Indication: COLORECTAL CANCER METASTATIC
     Dosage: 696 MILLIGRAM
     Route: 040
     Dates: start: 20201014
  12. FLUOROURACIL. [Suspect]
     Active Substance: FLUOROURACIL
     Dosage: 396 MILLIGRAM
     Route: 040
     Dates: start: 20201028
  13. FLUOROURACIL. [Suspect]
     Active Substance: FLUOROURACIL
     Dosage: 696 MILLIGRAM
     Route: 040
     Dates: start: 20201111
  14. PANITUMUMAB [Suspect]
     Active Substance: PANITUMUMAB
     Dosage: 366 MILLIGRAM
     Route: 042
     Dates: start: 20201223
  15. FLUOROURACIL. [Suspect]
     Active Substance: FLUOROURACIL
     Dosage: 700 MILLIGRAM
     Route: 040
     Dates: start: 20210324
  16. FLUOROURACIL. [Suspect]
     Active Substance: FLUOROURACIL
     Dosage: 696 MILLIGRAM
     Route: 040
     Dates: start: 20201223
  17. PANITUMUMAB [Suspect]
     Active Substance: PANITUMUMAB
     Dosage: 370 MILLIGRAM
     Route: 042
     Dates: start: 20210324
  18. FOLINIC ACID [Suspect]
     Active Substance: LEUCOVORIN
     Indication: COLORECTAL CANCER METASTATIC
     Dosage: 696 MILLIGRAM
     Route: 065
     Dates: start: 20201014
  19. FOLINIC ACID [Suspect]
     Active Substance: LEUCOVORIN
     Dosage: 396 MILLIGRAM
     Route: 065
     Dates: start: 20201028
  20. FOLINIC ACID [Suspect]
     Active Substance: LEUCOVORIN
     Dosage: 696 MILLIGRAM
     Route: 065
     Dates: start: 20201223
  21. FLUOROURACIL. [Suspect]
     Active Substance: FLUOROURACIL
     Dosage: 4180 MILLIGRAM
     Route: 042
     Dates: start: 20210324
  22. IRINOTECAN [Suspect]
     Active Substance: IRINOTECAN
     Indication: COLORECTAL CANCER METASTATIC
     Dosage: 313 MILLIGRAM
     Route: 065
     Dates: start: 20201014
  23. ERYTHROMYCIN RATIOPHARM [Concomitant]
     Indication: RASH
     Dosage: 50 GRAM, BID
     Route: 062
     Dates: start: 20210111
  24. SODERM [Concomitant]
     Indication: RASH
     Dosage: 1.22 UNK, BID
     Dates: start: 20210111

REACTIONS (1)
  - Portal vein thrombosis [Unknown]

NARRATIVE: CASE EVENT DATE: 20210414
